FAERS Safety Report 6558238-3 (Version None)
Quarter: 2010Q1

REPORT INFORMATION
  Report Type: 
  Country: None (occurrence: None)
  Receive Date: 20100129
  Receipt Date: 20100119
  Transmission Date: 20100710
  Serious: Yes (Other)
  Sender: FDA-Public Use
  Company Number: US-BRISTOL-MYERS SQUIBB COMPANY-14941033

PATIENT
  Age: 44 Year
  Sex: Female

DRUGS (4)
  1. AZTREONAM [Suspect]
  2. ERTAPENEM [Suspect]
     Indication: BRAIN ABSCESS
     Route: 042
  3. DAPTOMYCIN [Suspect]
  4. METRONIDAZOLE [Suspect]

REACTIONS (1)
  - DRUG RASH WITH EOSINOPHILIA AND SYSTEMIC SYMPTOMS [None]
